FAERS Safety Report 6329570-3 (Version None)
Quarter: 2009Q3

REPORT INFORMATION
  Report Type: 
  Country: None (occurrence: None)
  Receive Date: 20090714
  Receipt Date: 20090714
  Transmission Date: 20100115
  Serious: Yes (Hospitalization)
  Sender: FDA-Public Use
  Company Number: None

PATIENT
  Age: 50 Year
  Sex: Male
  Weight: 71.2147 kg

DRUGS (5)
  1. MORPHINE [Suspect]
     Indication: COMPLEX REGIONAL PAIN SYNDROME
     Dosage: CONTINUOUS IT
     Dates: start: 20070926, end: 20090713
  2. MORPHINE [Suspect]
     Indication: PAIN
     Dosage: CONTINUOUS IT
     Dates: start: 20070926, end: 20090713
  3. BACLOFEN [Suspect]
  4. CLONIDINE [Suspect]
  5. SYNCHROMED PUMP 863720 MEDTRONIC [Suspect]

REACTIONS (7)
  - DEVICE FAILURE [None]
  - DRUG WITHDRAWAL SYNDROME [None]
  - EMOTIONAL DISORDER [None]
  - HYPERSENSITIVITY [None]
  - INSOMNIA [None]
  - PAIN [None]
  - WEIGHT DECREASED [None]
